FAERS Safety Report 21832730 (Version 3)
Quarter: 2023Q2

REPORT INFORMATION
  Report Type: Spontaneous
  Country: US (occurrence: US)
  Receive Date: 20230106
  Receipt Date: 20230425
  Transmission Date: 20230722
  Serious: No
  Sender: FDA-Public Use
  Company Number: US-ALLERGAN-2236705US

PATIENT
  Age: 70 Year
  Sex: Female
  Weight: 63.492 kg

DRUGS (1)
  1. QULIPTA [Suspect]
     Active Substance: ATOGEPANT
     Indication: Product used for unknown indication
     Dosage: 60 MG, QD
     Dates: start: 20221020, end: 20221023

REACTIONS (6)
  - Dizziness [Recovered/Resolved]
  - Limb discomfort [Unknown]
  - Somnolence [Unknown]
  - Migraine [Unknown]
  - Fatigue [Unknown]
  - Headache [Unknown]

NARRATIVE: CASE EVENT DATE: 20221022
